FAERS Safety Report 16900063 (Version 1)
Quarter: 2019Q4

REPORT INFORMATION
  Report Type: Spontaneous
  Country: US (occurrence: US)
  Receive Date: 20191009
  Receipt Date: 20191009
  Transmission Date: 20200122
  Serious: Yes (Other)
  Sender: FDA-Public Use
  Company Number: US-MALLINCKRODT-T201906464

PATIENT
  Sex: Female
  Weight: 136 kg

DRUGS (2)
  1. H.P. ACTHAR [Suspect]
     Active Substance: CORTICOTROPIN
     Indication: POLYMYOSITIS
     Dosage: 80 UNITS (1ML), TWO TIMES A WEEK AS DIRECTED
     Route: 058
     Dates: start: 201908
  2. H.P. ACTHAR [Suspect]
     Active Substance: CORTICOTROPIN
     Indication: DERMATOMYOSITIS

REACTIONS (5)
  - Polymyositis [Unknown]
  - Alopecia [Unknown]
  - Thyroid disorder [Unknown]
  - Dermatomyositis [Unknown]
  - Condition aggravated [Unknown]

NARRATIVE: CASE EVENT DATE: 2019
